FAERS Safety Report 21621961 (Version 3)
Quarter: 2022Q4

REPORT INFORMATION
  Report Type: Spontaneous
  Country: US (occurrence: US)
  Receive Date: 20221121
  Receipt Date: 20221222
  Transmission Date: 20230113
  Serious: No
  Sender: FDA-Public Use
  Company Number: US-PFIZER INC-202201304345

PATIENT
  Age: 12 Year
  Sex: Male
  Weight: 34.47 kg

DRUGS (1)
  1. GENOTROPIN [Suspect]
     Active Substance: SOMATROPIN
     Indication: Short stature
     Dosage: 1.2 MG, 1X/DAY, (THINK DOES 1.2MG EVERY DAY)

REACTIONS (2)
  - Drug dose omission by device [Unknown]
  - Device use issue [Unknown]
